FAERS Safety Report 5174998-0 (Version None)
Quarter: 2006Q4

REPORT INFORMATION
  Report Type: 
  Country: None (occurrence: None)
  Receive Date: 20061206
  Receipt Date: 20061124
  Transmission Date: 20070319
  Serious: Yes (Other)
  Sender: FDA-Public Use
  Company Number: 2006146649

PATIENT
  Age: 74 Year
  Sex: Male

DRUGS (2)
  1. LYRICA [Suspect]
     Indication: SCIATICA
     Dosage: ORAL
     Route: 048
     Dates: start: 20061120, end: 20061123
  2. INSULIN [Suspect]
     Indication: DIABETES MELLITUS

REACTIONS (5)
  - ABASIA [None]
  - BLOOD GLUCOSE INCREASED [None]
  - DIZZINESS [None]
  - DRUG EFFECT DECREASED [None]
  - DRY MOUTH [None]
